FAERS Safety Report 5060721-7 (Version None)
Quarter: 2006Q3

REPORT INFORMATION
  Report Type: 
  Country: None (occurrence: None)
  Receive Date: 20060725
  Receipt Date: 20060714
  Transmission Date: 20061208
  Serious: Yes (Hospitalization)
  Sender: FDA-Public Use
  Company Number: US-JNJFOC-20060704078

PATIENT
  Sex: Female

DRUGS (3)
  1. IBUPROFEN [Suspect]
     Indication: ARTHRITIS
  2. DIOVAN [Interacting]
     Indication: HYPERTENSION
  3. ASPIRIN [Concomitant]
     Indication: ANTICOAGULANT THERAPY

REACTIONS (2)
  - DRUG INTERACTION [None]
  - HYPERTENSION [None]
